FAERS Safety Report 4668879-6 (Version None)
Quarter: 2005Q2

REPORT INFORMATION
  Report Type: 
  Country: None (occurrence: None)
  Receive Date: 20050519
  Receipt Date: 20050506
  Transmission Date: 20051028
  Serious: Yes (Hospitalization)
  Sender: FDA-Public Use
  Company Number: 2004BI000808

PATIENT
  Age: 44 Year
  Sex: Female

DRUGS (14)
  1. AVONEX [Suspect]
     Indication: MULTIPLE SCLEROSIS
     Dosage: 30 UG; QW; IM
     Route: 030
     Dates: start: 20041122, end: 20041206
  2. DURAGESIC-100 [Concomitant]
  3. FLEXERIL [Concomitant]
  4. PROVIGIL [Concomitant]
  5. ZANAFLEX [Concomitant]
  6. ULTRACET [Concomitant]
  7. ALBUTEROL [Concomitant]
  8. PAXIL [Concomitant]
  9. KLONOPIN [Concomitant]
  10. PREVACID [Concomitant]
  11. M.V.I. [Concomitant]
  12. NEURONTIN [Concomitant]
  13. EXCEDRIN (MIGRAINE) [Concomitant]
  14. PROTONIX [Concomitant]

REACTIONS (1)
  - PNEUMONITIS [None]
